FAERS Safety Report 10163146 (Version 3)
Quarter: 2014Q2

REPORT INFORMATION
  Report Type: Report from Study
  Country: US (occurrence: US)
  Receive Date: 20140509
  Receipt Date: 20140528
  Transmission Date: 20141212
  Serious: Yes (Hospitalization)
  Sender: FDA-Public Use
  Company Number: US-GLAXOSMITHKLINE-A1072485A

PATIENT
  Age: 74 Year
  Sex: Female

DRUGS (13)
  1. TRAMETINIB [Suspect]
     Indication: CERVIX CARCINOMA
     Dosage: 1.5MG PER DAY
     Route: 048
     Dates: start: 20140303
  2. GSK2141795 [Suspect]
     Indication: CERVIX CARCINOMA
     Dosage: 50MG PER DAY
     Route: 048
     Dates: start: 20140303
  3. CLINDAMYCIN GEL [Concomitant]
  4. COMPAZINE [Concomitant]
  5. DIPHENHYDRAMINE HYDROCHLORIDE + LIDOCAINE HYDROCHLORIDE + MAALOX [Concomitant]
  6. MAGNESIUM OXIDE [Concomitant]
  7. METHYLPREDNISOLONE [Concomitant]
  8. NEURONTIN [Concomitant]
  9. SYNTHROID [Concomitant]
  10. TESSALON PERLES [Concomitant]
  11. TRIAMCINOLONE [Concomitant]
  12. VALTREX [Concomitant]
  13. VITAMIN B6 [Concomitant]

REACTIONS (1)
  - Pneumonitis [Recovering/Resolving]
